FAERS Safety Report 6745480-1 (Version None)
Quarter: 2010Q2

REPORT INFORMATION
  Report Type: 
  Country: None (occurrence: None)
  Receive Date: 20100528
  Receipt Date: 20100518
  Transmission Date: 20101027
  Serious: Yes (Death, Other)
  Sender: FDA-Public Use
  Company Number: US-BAYER-201022920NA

PATIENT
  Age: 69 Year
  Sex: Male

DRUGS (1)
  1. BETASERON [Suspect]
     Indication: MULTIPLE SCLEROSIS
     Dosage: TOTAL DAILY DOSE: 8 MIU
     Route: 058
     Dates: start: 20031208, end: 20100401

REACTIONS (4)
  - DEATH [None]
  - DECUBITUS ULCER [None]
  - PERIPHERAL VASCULAR DISORDER [None]
  - SEPSIS [None]
